FAERS Safety Report 23811723 (Version 2)
Quarter: 2025Q1

REPORT INFORMATION
  Report Type: Spontaneous
  Country: RO (occurrence: RO)
  Receive Date: 20240503
  Receipt Date: 20250113
  Transmission Date: 20250409
  Serious: Yes (Other)
  Sender: JOHNSON AND JOHNSON
  Company Number: RO-SUN PHARMACEUTICAL INDUSTRIES LTD-2024RR-444130

PATIENT
  Age: 36 Year
  Sex: Male

DRUGS (3)
  1. RISPERDAL [Suspect]
     Active Substance: RISPERIDONE
     Indication: Depression
     Route: 048
     Dates: start: 202202, end: 202303
  2. OLANZAPINE [Suspect]
     Active Substance: OLANZAPINE
     Indication: Depression
     Route: 065
     Dates: start: 202202, end: 202303
  3. ESCITALOPRAM [Suspect]
     Active Substance: ESCITALOPRAM OXALATE
     Indication: Depression
     Route: 065
     Dates: start: 202202, end: 202303

REACTIONS (4)
  - Overdose [Unknown]
  - Suicide attempt [Unknown]
  - Off label use [Unknown]
  - Therapeutic product effect incomplete [Unknown]
